FAERS Safety Report 5914259-2 (Version None)
Quarter: 2008Q4

REPORT INFORMATION
  Report Type: 
  Country: None (occurrence: None)
  Receive Date: 20081009
  Receipt Date: 20080926
  Transmission Date: 20090506
  Serious: Yes (Hospitalization)
  Sender: FDA-Public Use
  Company Number: US-ELI_LILLY_AND_COMPANY-US200809006818

PATIENT
  Sex: Female

DRUGS (7)
  1. FORTEO [Suspect]
     Indication: OSTEOPOROSIS
     Dosage: 20 UG, DAILY (1/D)
     Dates: start: 20080701
  2. PEPCID [Concomitant]
  3. SIMVASTATIN [Concomitant]
  4. SINGULAIR [Concomitant]
  5. ALDACTONE [Concomitant]
  6. ALLEGRA [Concomitant]
  7. NORVASC [Concomitant]

REACTIONS (2)
  - CARDIAC PACEMAKER INSERTION [None]
  - INJECTION SITE REACTION [None]
